FAERS Safety Report 10061280 (Version 1)
Quarter: 2014Q2

REPORT INFORMATION
  Report Type: Spontaneous
  Country: DK (occurrence: DK)
  Receive Date: 20140407
  Receipt Date: 20140407
  Transmission Date: 20141212
  Serious: Yes (Hospitalization, Other)
  Sender: FDA-Public Use
  Company Number: DK-MERCK-1404DNK000039

PATIENT
  Age: 82 Year
  Sex: Male

DRUGS (18)
  1. IVERMECTIN [Suspect]
     Indication: ACARODERMATITIS
     Dosage: UNK
     Route: 048
     Dates: start: 20140210, end: 20140219
  2. MAREVAN [Suspect]
     Indication: ATRIAL FIBRILLATION
     Dosage: 1 TABLET FRIDAY, ELSE 2 TABLETS DAILY
     Route: 048
     Dates: end: 20140219
  3. MAREVAN [Suspect]
     Indication: THROMBOSIS
  4. MAREVAN [Suspect]
     Indication: CARDIAC FIBRILLATION
  5. CATAPRESAN [Concomitant]
     Indication: MIGRAINE
     Route: 048
  6. DIGOXIN [Concomitant]
     Indication: ATRIAL FIBRILLATION
     Route: 048
  7. GABAPENTIN [Concomitant]
     Indication: PAIN
     Route: 048
  8. IMDUR [Concomitant]
     Indication: ANGINA PECTORIS
     Route: 048
  9. IMOCLONE [Concomitant]
     Indication: PRODUCT USED FOR UNKNOWN INDICATION
     Route: 048
  10. CHLORZOXAZONE [Concomitant]
     Indication: MUSCLE RELAXANT THERAPY
     Route: 048
  11. METADON [Concomitant]
     Indication: PRODUCT USED FOR UNKNOWN INDICATION
  12. MOVICOL [Concomitant]
     Indication: CONSTIPATION
     Route: 048
  13. VITAMINS (UNSPECIFIED) [Concomitant]
     Indication: VITAMIN SUPPLEMENTATION
  14. NIX [Concomitant]
     Indication: ACARODERMATITIS
     Dosage: UNK
     Route: 003
     Dates: start: 20140210, end: 20140219
  15. OXAPAX [Concomitant]
     Indication: PRODUCT USED FOR UNKNOWN INDICATION
     Route: 048
  16. OXYNORM [Concomitant]
     Indication: PAIN
  17. PERILAX [Concomitant]
     Indication: CONSTIPATION
  18. SIMVASTATIN ACTAVIS [Concomitant]
     Indication: HYPERCHOLESTEROLAEMIA
     Route: 048

REACTIONS (6)
  - Urinary tract infection [Unknown]
  - Hepatic enzyme increased [Recovered/Resolved]
  - Jaundice [Recovered/Resolved]
  - Aspartate aminotransferase increased [Recovered/Resolved]
  - Alanine aminotransferase increased [Recovered/Resolved]
  - Blood alkaline phosphatase increased [Recovered/Resolved]
